FAERS Safety Report 9500426 (Version 1)
Quarter: 2013Q3

REPORT INFORMATION
  Report Type: Spontaneous
  Country: NL (occurrence: NL)
  Receive Date: 20130905
  Receipt Date: 20130905
  Transmission Date: 20140515
  Serious: Yes (Other)
  Sender: FDA-Public Use
  Company Number: NL-MYLANLABS-2013S1019146

PATIENT
  Age: 55 Year
  Sex: Female

DRUGS (6)
  1. PAROXETINE [Suspect]
     Indication: HYPERPATHIA
     Dosage: 20 MG/DAY
     Route: 065
     Dates: start: 201006
  2. PAROXETINE [Suspect]
     Indication: DYSAESTHESIA
     Dosage: 20 MG/DAY
     Route: 065
     Dates: start: 201006
  3. CARBAMAZEPINE [Concomitant]
     Indication: HYPERPATHIA
     Dosage: 200-800 MG/DAY
     Route: 065
     Dates: start: 201007, end: 201201
  4. CARBAMAZEPINE [Concomitant]
     Indication: DYSAESTHESIA
     Dosage: 200-800 MG/DAY
     Route: 065
     Dates: start: 201007, end: 201201
  5. DEPAKINE [Concomitant]
     Indication: HYPERPATHIA
     Dosage: 1000 MG/DAY
     Route: 065
     Dates: start: 201012, end: 201201
  6. DEPAKINE [Concomitant]
     Indication: DYSAESTHESIA
     Dosage: 1000 MG/DAY
     Route: 065
     Dates: start: 201012, end: 201201

REACTIONS (1)
  - Female orgasmic disorder [Recovered/Resolved]
